FAERS Safety Report 6646069-5 (Version None)
Quarter: 2010Q1

REPORT INFORMATION
  Report Type: 
  Country: None (occurrence: None)
  Receive Date: 20100322
  Receipt Date: 20100322
  Transmission Date: 20100710
  Serious: Yes (Other)
  Sender: FDA-Public Use
  Company Number: None

PATIENT
  Age: 62 Year
  Sex: Female
  Weight: 85.2762 kg

DRUGS (1)
  1. TUBERCULIN NOS [Suspect]
     Indication: TUBERCULIN TEST
     Dosage: 0.1 ML ONCE ID ONCE
     Route: 026
     Dates: start: 20100315, end: 20100315

REACTIONS (1)
  - INJECTION SITE VESICLES [None]
